FAERS Safety Report 6960173-3 (Version None)
Quarter: 2010Q3

REPORT INFORMATION
  Report Type: 
  Country: None (occurrence: None)
  Receive Date: 20100901
  Receipt Date: 20100823
  Transmission Date: 20110219
  Serious: Yes (Hospitalization)
  Sender: FDA-Public Use
  Company Number: NO-ASTRAZENECA-2010SE39619

PATIENT
  Age: 22606 Day
  Sex: Male

DRUGS (12)
  1. NEXIUM [Suspect]
     Indication: MALLORY-WEISS SYNDROME
     Route: 041
     Dates: start: 20100802, end: 20100804
  2. DIPRIVAN [Suspect]
     Indication: ENDOSCOPY UPPER GASTROINTESTINAL TRACT
     Route: 042
     Dates: start: 20100802, end: 20100802
  3. DORMICUM [Suspect]
     Indication: ENDOSCOPY UPPER GASTROINTESTINAL TRACT
     Route: 042
     Dates: start: 20100802, end: 20100802
  4. FLUTIDE [Concomitant]
  5. ALBYL-E [Concomitant]
     Route: 048
  6. SPIRIX [Concomitant]
     Dosage: WHEN NEEDED
     Route: 048
  7. ENALAPRIL MALEATE [Concomitant]
     Route: 048
  8. PREDNISOLONE [Concomitant]
     Route: 048
  9. DICLOFENAC [Concomitant]
     Route: 048
  10. PRAVASTATIN [Concomitant]
     Route: 048
  11. OMNIC [Concomitant]
     Route: 048
  12. DIURAL [Concomitant]
     Dosage: WHEN NEEDED
     Route: 048

REACTIONS (2)
  - DISSEMINATED INTRAVASCULAR COAGULATION [None]
  - HEPATIC FAILURE [None]
